FAERS Safety Report 4863984-3 (Version None)
Quarter: 2005Q4

REPORT INFORMATION
  Report Type: 
  Country: None (occurrence: None)
  Receive Date: 20051222
  Receipt Date: 20051215
  Transmission Date: 20060501
  Serious: Yes (Death)
  Sender: FDA-Public Use
  Company Number: US-ABBOTT-05P-163-0319712-00

PATIENT
  Age: 21 Year
  Sex: Male

DRUGS (1)
  1. DEPAKOTE [Suspect]
     Indication: CONVULSION
     Route: 048

REACTIONS (1)
  - COMPLETED SUICIDE [None]
